FAERS Safety Report 8481562-4 (Version None)
Quarter: 2012Q3

REPORT INFORMATION
  Report Type: 
  Country: None (occurrence: None)
  Receive Date: 20120702
  Receipt Date: 20120620
  Transmission Date: 20120928
  Serious: Yes (Hospitalization)
  Sender: FDA-Public Use
  Company Number: JP-VERTEX PHARMACEUTICALS INC.-AE-2012-007854

PATIENT
  Age: 46 Year
  Sex: Male

DRUGS (8)
  1. LENDORMIN [Concomitant]
     Route: 048
  2. RIBAVIRIN [Concomitant]
     Indication: HEPATITIS C
     Route: 048
     Dates: start: 20120216, end: 20120523
  3. PEGINTERFERON ALFA-2B [Concomitant]
     Indication: HEPATITIS C
     Route: 058
     Dates: start: 20120216, end: 20120516
  4. DEPAKENE [Concomitant]
     Route: 048
  5. ALLOPURINOL [Concomitant]
     Route: 048
  6. ROHYPNOL [Concomitant]
     Route: 048
  7. VEGETAMIN-B [Concomitant]
     Route: 048
  8. TELAVIC (TELAPREVIR) [Suspect]
     Indication: HEPATITIS C
     Route: 048
     Dates: start: 20120216, end: 20120510

REACTIONS (3)
  - DEPRESSION [None]
  - BLOOD CREATINE PHOSPHOKINASE INCREASED [None]
  - SUBSTANCE-INDUCED PSYCHOTIC DISORDER [None]
